FAERS Safety Report 14927089 (Version 2)
Quarter: 2018Q2

REPORT INFORMATION
  Report Type: Spontaneous
  Country: BR (occurrence: BR)
  Receive Date: 20180523
  Receipt Date: 20180525
  Transmission Date: 20180711
  Serious: Yes (Death, Other)
  Sender: FDA-Public Use
  Company Number: BR-AMGEN-BRASP2018068219

PATIENT
  Age: 43 Year
  Sex: Female

DRUGS (1)
  1. ENBREL [Suspect]
     Active Substance: ETANERCEPT
     Indication: PRODUCT USED FOR UNKNOWN INDICATION
     Dosage: UNK
     Route: 065

REACTIONS (7)
  - Venom poisoning [Fatal]
  - Systemic lupus erythematosus [Unknown]
  - Arthropod bite [Fatal]
  - Cardiac disorder [Unknown]
  - Decreased immune responsiveness [Unknown]
  - Malaise [Unknown]
  - Multiple organ dysfunction syndrome [Fatal]
